FAERS Safety Report 5128424-8 (Version None)
Quarter: 2006Q4

REPORT INFORMATION
  Report Type: 
  Country: None (occurrence: None)
  Receive Date: 20061017
  Receipt Date: 20060113
  Transmission Date: 20070319
  Serious: Yes (Other)
  Sender: FDA-Public Use
  Company Number: US-ROCHE-432379

PATIENT
  Age: 24 Year
  Sex: Female
  Weight: 56.7 kg

DRUGS (3)
  1. ACCUTANE [Suspect]
     Indication: ACNE
     Route: 048
     Dates: start: 19980515, end: 19980806
  2. ACCUTANE [Suspect]
     Route: 048
     Dates: start: 19980806, end: 19981015
  3. OVCON-35 [Concomitant]
     Route: 048

REACTIONS (6)
  - ANAEMIA [None]
  - CROHN'S DISEASE [None]
  - FEMALE GENITAL TRACT FISTULA [None]
  - HAEMORRHOIDS [None]
  - INFLAMMATORY BOWEL DISEASE [None]
  - INJURY [None]
